FAERS Safety Report 9806375 (Version 2)
Quarter: 2014Q3

REPORT INFORMATION
  Report Type: Report from Study
  Country: US (occurrence: US)
  Receive Date: 20140109
  Receipt Date: 20140903
  Transmission Date: 20150326
  Serious: Yes (Death, Other)
  Sender: FDA-Public Use
  Company Number: US-MPIJNJ-2013MPI001473

PATIENT
  Age: 82 Year
  Sex: Male

DRUGS (1)
  1. VELCADE [Suspect]
     Active Substance: BORTEZOMIB
     Indication: PLASMA CELL MYELOMA
     Dosage: 1.0 MG/M2, ON DAYS 1, 8 AND 15 Q 28 DAYS
     Route: 058
     Dates: start: 20130422, end: 20130909

REACTIONS (2)
  - Starvation [Fatal]
  - Back pain [Fatal]

NARRATIVE: CASE EVENT DATE: 20130913
